FAERS Safety Report 17558691 (Version 4)
Quarter: 2020Q2

REPORT INFORMATION
  Report Type: Spontaneous
  Country: JP (occurrence: JP)
  Receive Date: 20200319
  Receipt Date: 20200626
  Transmission Date: 20200713
  Serious: Yes (Death, Hospitalization, Other)
  Sender: FDA-Public Use
  Company Number: JP-AMGEN-JPNSP2020045353

PATIENT
  Age: 73 Year
  Sex: Female
  Weight: 32.4 kg

DRUGS (14)
  1. TAKECAB [Concomitant]
     Active Substance: VONOPRAZAN FUMARATE
     Dosage: 20 MILLIGRAM, QD
     Route: 048
  2. OXAROL MARUHO [Concomitant]
     Dosage: 2.5 MICROGRAM, 2 TIMES/WK
     Route: 065
     Dates: start: 20191001
  3. SIGMART [Concomitant]
     Active Substance: NICORANDIL
     Dosage: 5 MILLIGRAM, Q8H
     Route: 048
  4. LIPITOR [Concomitant]
     Active Substance: ATORVASTATIN CALCIUM
     Dosage: 5 MILLIGRAM, QD
     Route: 048
  5. NESP [Concomitant]
     Active Substance: DARBEPOETIN ALFA
     Dosage: 5 MICROGRAM, QWK
     Route: 065
  6. PIMOBENDAN [Concomitant]
     Active Substance: PIMOBENDAN
     Dosage: 2.5 MILLIGRAM, Q12H
     Route: 048
  7. DAIKENCHUTO [Concomitant]
     Active Substance: HERBALS
     Dosage: UNK
     Route: 065
  8. PARSABIV [Suspect]
     Active Substance: ETELCALCETIDE HYDROCHLORIDE
     Indication: HYPERPARATHYROIDISM SECONDARY
     Dosage: 2.5 MILLIGRAM, 2 TIMES/WK
     Route: 010
     Dates: start: 20190521
  9. BAYASPIRIN [Concomitant]
     Active Substance: ASPIRIN
     Dosage: 100 MILLIGRAM, QD
     Route: 048
  10. ARTIST [Concomitant]
     Active Substance: CARVEDILOL
     Dosage: 1.25 MILLIGRAM, QD
     Route: 048
  11. OXAROL MARUHO [Concomitant]
     Indication: HYPERPARATHYROIDISM SECONDARY
     Dosage: 5 MICROGRAM, 2 TIMES/WK
     Route: 065
     Dates: end: 20190928
  12. DOPS [Concomitant]
     Active Substance: DROXIDOPA
     Dosage: 100 MILLIGRAM, Q8H
     Route: 048
  13. CERCINE [Concomitant]
     Active Substance: DIAZEPAM
     Dosage: 2 MILLIGRAM, QD
     Route: 048
  14. FESIN [SACCHARATED IRON OXIDE] [Concomitant]
     Active Substance: IRON SUCROSE
     Dosage: 40 MILLIGRAM, QWK
     Route: 065
     Dates: start: 20190305

REACTIONS (2)
  - Pneumonia [Recovered/Resolved]
  - Large intestine perforation [Fatal]

NARRATIVE: CASE EVENT DATE: 20200125
